FAERS Safety Report 6410492-4 (Version None)
Quarter: 2009Q4

REPORT INFORMATION
  Report Type: 
  Country: None (occurrence: None)
  Receive Date: 20091022
  Receipt Date: 20091016
  Transmission Date: 20100525
  Serious: Yes (Hospitalization, Disabling)
  Sender: FDA-Public Use
  Company Number: AU-MERCK-0902AUS00022

PATIENT
  Age: 83 Year
  Sex: Female

DRUGS (4)
  1. FOSAMAX [Suspect]
     Indication: OSTEOPOROSIS
     Route: 048
     Dates: end: 20090227
  2. FOSAMAX [Suspect]
     Route: 065
     Dates: start: 19990101
  3. CALCIUM CARBONATE [Concomitant]
     Route: 065
  4. CHOLECALCIFEROL [Concomitant]
     Route: 065

REACTIONS (2)
  - FEMUR FRACTURE [None]
  - STRESS FRACTURE [None]
